FAERS Safety Report 7919723-2 (Version None)
Quarter: 2011Q4

REPORT INFORMATION
  Report Type: 
  Country: None (occurrence: None)
  Receive Date: 20111115
  Receipt Date: 20111104
  Transmission Date: 20120403
  Serious: Yes (Other)
  Sender: FDA-Public Use
  Company Number: 2011P1010230

PATIENT

DRUGS (2)
  1. UNSPECIFIED RENAL EXCRETION DRUGS [Suspect]
  2. FAMOTIDINE [Suspect]
     Dosage: ;PO
     Route: 048

REACTIONS (4)
  - CONDITION AGGRAVATED [None]
  - DIALYSIS [None]
  - RENAL FAILURE CHRONIC [None]
  - EOSINOPHIL COUNT INCREASED [None]
